FAERS Safety Report 25817102 (Version 1)
Quarter: 2025Q3

REPORT INFORMATION
  Report Type: Spontaneous
  Country: US (occurrence: US)
  Receive Date: 20250918
  Receipt Date: 20250918
  Transmission Date: 20251021
  Serious: Yes (Other)
  Sender: COOPERSURGICAL
  Company Number: US-COOPERSURGICAL, INC.-2025CPS006662

PATIENT
  Age: 25 Year
  Sex: Female
  Weight: 50.794 kg

DRUGS (1)
  1. PARAGARD T 380A [Suspect]
     Active Substance: COPPER
     Route: 015
     Dates: start: 20180507

REACTIONS (21)
  - Reproductive complication associated with device [Not Recovered/Not Resolved]
  - Cervix carcinoma [Unknown]
  - Uterine cancer [Unknown]
  - Uterine injury [Unknown]
  - Device breakage [Not Recovered/Not Resolved]
  - Foreign body in reproductive tract [Not Recovered/Not Resolved]
  - Complication of device removal [Not Recovered/Not Resolved]
  - Embedded device [Not Recovered/Not Resolved]
  - Device dislocation [Not Recovered/Not Resolved]
  - Uterine perforation [Not Recovered/Not Resolved]
  - Emotional distress [Unknown]
  - Dyspareunia [Not Recovered/Not Resolved]
  - Heavy menstrual bleeding [Not Recovered/Not Resolved]
  - Pelvic pain [Not Recovered/Not Resolved]
  - Abnormal uterine bleeding [Unknown]
  - Anaemia [Unknown]
  - Bacterial vulvovaginitis [Unknown]
  - Vulvovaginal candidiasis [Unknown]
  - Vulvovaginal mycotic infection [Unknown]
  - Pain [Not Recovered/Not Resolved]
  - Menstruation irregular [Unknown]

NARRATIVE: CASE EVENT DATE: 20220101
